FAERS Safety Report 8947933 (Version 1)
Quarter: 2012Q4

REPORT INFORMATION
  Report Type: 
  Country: US (occurrence: US)
  Receive Date: 20121204
  Receipt Date: 20121204
  Transmission Date: 20130627
  Serious: Yes (Other)
  Sender: FDA-Public Use
  Company Number: US-BAYER-2012-114032

PATIENT
  Age: 65 Year
  Sex: Male

DRUGS (1)
  1. STIVARGA [Suspect]
     Indication: COLON CANCER
     Dosage: 160 mg, QD
     Route: 048
     Dates: start: 20121022, end: 20121116

REACTIONS (7)
  - Mobility decreased [Not Recovered/Not Resolved]
  - Asthenia [Not Recovered/Not Resolved]
  - Dyspnoea [Not Recovered/Not Resolved]
  - Sensation of foreign body [Not Recovered/Not Resolved]
  - Oral pain [Not Recovered/Not Resolved]
  - Fatigue [Not Recovered/Not Resolved]
  - Joint swelling [Not Recovered/Not Resolved]
